FAERS Safety Report 8991130 (Version 1)
Quarter: 2012Q4

REPORT INFORMATION
  Report Type: 
  Country: US (occurrence: US)
  Receive Date: 20121231
  Receipt Date: 20121231
  Transmission Date: 20130627
  Serious: No
  Sender: FDA-Public Use
  Company Number: US-BAYER-2012-131922

PATIENT
  Age: 32 Year
  Sex: Female
  Weight: 74.83 kg

DRUGS (7)
  1. BETASERON [Suspect]
     Dosage: 0.3 mg, QOD
     Route: 058
  2. AMPYRA [Concomitant]
     Dosage: 10 mg, UNK
     Route: 048
  3. BACLOFEN [Concomitant]
     Dosage: 10 mg, UNK
     Route: 048
  4. VESICARE [Concomitant]
     Dosage: 10 mg, UNK
     Route: 048
  5. ZOLOFT [Concomitant]
     Dosage: 50 mg, UNK
     Route: 048
  6. VITAMIN D [Concomitant]
     Dosage: 500000 u, UNK
     Route: 048
  7. VITAMIN B12 (CYANOCOBALAMIN AND ANALOGUES) [Concomitant]
     Dosage: 500 ?g, UNK
     Route: 048

REACTIONS (1)
  - Depression [Unknown]
